FAERS Safety Report 17745503 (Version 2)
Quarter: 2020Q2

REPORT INFORMATION
  Report Type: Report from Study
  Country: CA (occurrence: CA)
  Receive Date: 20200505
  Receipt Date: 20200531
  Transmission Date: 20200714
  Serious: Yes (Other)
  Sender: FDA-Public Use
  Company Number: PHHY2018CA055025

PATIENT
  Age: 85 Year
  Sex: Male

DRUGS (2)
  1. ELIGARD [Concomitant]
     Active Substance: LEUPROLIDE ACETATE
     Indication: PRODUCT USED FOR UNKNOWN INDICATION
     Dosage: 12 UNK
     Route: 065
  2. SANDOSTATIN LAR DEPOT [Suspect]
     Active Substance: OCTREOTIDE ACETATE
     Indication: CARCINOID TUMOUR
     Dosage: 30 MG, QMO
     Route: 030
     Dates: start: 20170330

REACTIONS (11)
  - Blood pressure systolic increased [Unknown]
  - Macular degeneration [Unknown]
  - Glaucoma [Unknown]
  - Heart rate decreased [Unknown]
  - Intraocular pressure increased [Recovering/Resolving]
  - Intestinal dilatation [Unknown]
  - Back pain [Recovered/Resolved]
  - Metastases to spine [Unknown]
  - Visual field defect [Unknown]
  - Prostate cancer recurrent [Unknown]
  - Fall [Recovered/Resolved]

NARRATIVE: CASE EVENT DATE: 201804
